FAERS Safety Report 12715575 (Version 1)
Quarter: 2016Q3

REPORT INFORMATION
  Report Type: Spontaneous
  Country: GB (occurrence: GB)
  Receive Date: 20160906
  Receipt Date: 20160906
  Transmission Date: 20161109
  Serious: Yes (Hospitalization)
  Sender: FDA-Public Use
  Company Number: GB-ACCORD-043678

PATIENT
  Sex: Male

DRUGS (12)
  1. ATORVASTATIN [Concomitant]
     Active Substance: ATORVASTATIN
  2. SALBUTAMOL [Concomitant]
     Active Substance: ALBUTEROL
  3. WARFARIN [Concomitant]
     Active Substance: WARFARIN
  4. SERETIDE [Concomitant]
     Active Substance: FLUTICASONE PROPIONATE\SALMETEROL XINAFOATE
  5. PARACETAMOL [Concomitant]
     Active Substance: ACETAMINOPHEN
  6. TAMSULOSIN/TAMSULOSIN HYDROCHLORIDE [Concomitant]
  7. SERTRALINE [Suspect]
     Active Substance: SERTRALINE HYDROCHLORIDE
     Indication: DEPRESSION
     Route: 048
     Dates: start: 20160803
  8. ACLIDINIUM BROMIDE [Concomitant]
     Active Substance: ACLIDINIUM BROMIDE
  9. DILTIAZEM. [Concomitant]
     Active Substance: DILTIAZEM
  10. RANITIDINE. [Concomitant]
     Active Substance: RANITIDINE
  11. METFORMIN [Concomitant]
     Active Substance: METFORMIN HYDROCHLORIDE
  12. NEFOPAM [Concomitant]
     Active Substance: NEFOPAM

REACTIONS (1)
  - International normalised ratio increased [Recovered/Resolved]

NARRATIVE: CASE EVENT DATE: 20160810
